FAERS Safety Report 18591746 (Version 1)
Quarter: 2020Q4

REPORT INFORMATION
  Report Type: Report from Study
  Country: DE (occurrence: DE)
  Receive Date: 20201208
  Receipt Date: 20201208
  Transmission Date: 20210114
  Serious: Yes (Hospitalization)
  Sender: FDA-Public Use
  Company Number: DE-INCYTE CORPORATION-2018IN003908

PATIENT

DRUGS (27)
  1. ALLOPURINOL. [Concomitant]
     Active Substance: ALLOPURINOL
     Dosage: 100 OT
     Route: 065
     Dates: start: 20171002, end: 20180417
  2. JANUVIA [Concomitant]
     Active Substance: SITAGLIPTIN PHOSPHATE
     Dosage: 50 MG
     Route: 065
     Dates: start: 201802
  3. JANUVIA [Concomitant]
     Active Substance: SITAGLIPTIN PHOSPHATE
     Dosage: 50 MG
     Route: 065
     Dates: start: 20200305, end: 20200527
  4. CARMEN [LERCANIDIPINE HYDROCHLORIDE] [Concomitant]
     Active Substance: LERCANIDIPINE HYDROCHLORIDE
     Indication: HYPERTENSION
     Dosage: 20 MG, UNK
     Route: 065
     Dates: start: 20180205
  5. ADENURIC [Concomitant]
     Active Substance: FEBUXOSTAT
     Dosage: 80 MG, UNK
     Route: 065
     Dates: start: 20180418, end: 20200304
  6. PANTOPRAZOLE [Concomitant]
     Active Substance: PANTOPRAZOLE
     Indication: PROPHYLAXIS AGAINST GASTROINTESTINAL ULCER
     Dosage: 40 MG
     Route: 065
     Dates: start: 20180205
  7. ALLOPURINOL. [Concomitant]
     Active Substance: ALLOPURINOL
     Indication: BLOOD URIC ACID INCREASED
     Dosage: 100 OT
     Route: 048
     Dates: start: 20170307, end: 20180417
  8. ADENURIC [Concomitant]
     Active Substance: FEBUXOSTAT
     Indication: PRODUCT USED FOR UNKNOWN INDICATION
     Dosage: 80 MG
     Route: 065
     Dates: start: 201802
  9. SIMVASTATIN. [Concomitant]
     Active Substance: SIMVASTATIN
     Indication: BLOOD CHOLESTEROL INCREASED
     Dosage: 20 UNK
     Route: 048
     Dates: start: 201608
  10. CANDESARTAN. [Concomitant]
     Active Substance: CANDESARTAN
     Indication: HYPERTENSION
     Dosage: 32 MG, UNK
     Route: 065
     Dates: start: 20180205
  11. LANTUS [Concomitant]
     Active Substance: INSULIN GLARGINE
     Dosage: 8 IU
     Route: 065
     Dates: start: 20180418
  12. INCB018424 [Suspect]
     Active Substance: RUXOLITINIB
     Dosage: 40 OT
     Route: 065
     Dates: start: 20170713
  13. BISOPROLOL [Concomitant]
     Active Substance: BISOPROLOL
     Indication: HYPERTENSION
     Dosage: 5 UNK
     Route: 048
     Dates: start: 201608
  14. ASPIRIN. [Concomitant]
     Active Substance: ASPIRIN
     Indication: PRODUCT USED FOR UNKNOWN INDICATION
     Dosage: 100 UNK
     Route: 048
     Dates: start: 20171002
  15. JANUVIA [Concomitant]
     Active Substance: SITAGLIPTIN PHOSPHATE
     Indication: DIABETES MELLITUS
     Dosage: 100 UNK
     Route: 048
     Dates: start: 20171002, end: 201802
  16. CANDESARTAN. [Concomitant]
     Active Substance: CANDESARTAN
     Dosage: 32 MG, UNK
     Route: 065
  17. LERCANIDIPINE [Concomitant]
     Active Substance: LERCANIDIPINE
     Indication: PRODUCT USED FOR UNKNOWN INDICATION
     Dosage: 20 UNK
     Route: 065
  18. CORTISONE [Concomitant]
     Active Substance: CORTISONE
     Indication: PRODUCT USED FOR UNKNOWN INDICATION
     Dosage: UNK UNK, PRN
     Route: 065
     Dates: start: 20190313, end: 20200429
  19. INCB018424 [Suspect]
     Active Substance: RUXOLITINIB
     Dosage: 40 MG, BID
     Route: 048
     Dates: start: 20191125
  20. TORASEMIDE [Concomitant]
     Active Substance: TORSEMIDE
     Dosage: 20 UNK
     Route: 048
     Dates: start: 20180205, end: 20180205
  21. METFORMIN [Concomitant]
     Active Substance: METFORMIN HYDROCHLORIDE
     Indication: DIABETES MELLITUS
     Dosage: 1000 MG, UNK
     Route: 065
     Dates: end: 20180205
  22. LANTUS [Concomitant]
     Active Substance: INSULIN GLARGINE
     Indication: DIABETES MELLITUS
     Dosage: 8 IE
     Route: 065
     Dates: start: 20180205
  23. INCB018424 [Suspect]
     Active Substance: RUXOLITINIB
     Indication: PRIMARY MYELOFIBROSIS
     Dosage: 40 MG, BID
     Route: 048
     Dates: start: 20170306
  24. INCB018424 [Suspect]
     Active Substance: RUXOLITINIB
     Dosage: 50 MG, BID
     Route: 048
     Dates: start: 20190220, end: 20191124
  25. TORASEMIDE [Concomitant]
     Active Substance: TORSEMIDE
     Indication: HYPERTENSION
     Dosage: 30 UNK
     Route: 065
     Dates: start: 201608, end: 20180204
  26. JANUVIA [Concomitant]
     Active Substance: SITAGLIPTIN PHOSPHATE
     Dosage: 100 UNK
     Route: 065
     Dates: start: 20180205
  27. METFORMIN [Concomitant]
     Active Substance: METFORMIN HYDROCHLORIDE
     Dosage: 1000 MG, UNK
     Route: 065
     Dates: start: 20180205

REACTIONS (20)
  - Eosinophil count increased [Unknown]
  - Cardiomegaly [Recovered/Resolved]
  - Granulocyte count increased [Unknown]
  - Lymphocyte count decreased [Unknown]
  - Neutrophil count increased [Unknown]
  - Platelet count increased [Unknown]
  - Vomiting [Recovered/Resolved]
  - White blood cell count increased [Unknown]
  - Nasal inflammation [Recovered/Resolved]
  - Interstitial lung disease [Unknown]
  - Bronchitis [Unknown]
  - Haemoglobin decreased [Unknown]
  - Leukocytosis [Recovering/Resolving]
  - Anaemia [Not Recovered/Not Resolved]
  - Pneumonia [Recovered/Resolved]
  - Basophil count increased [Unknown]
  - Red blood cell count increased [Unknown]
  - Monocyte count increased [Unknown]
  - Nausea [Recovered/Resolved]
  - Haematocrit decreased [Unknown]

NARRATIVE: CASE EVENT DATE: 20180122
